FAERS Safety Report 4941724-7 (Version None)
Quarter: 2006Q1

REPORT INFORMATION
  Report Type: 
  Country: None (occurrence: None)
  Receive Date: 20060308
  Receipt Date: 20060227
  Transmission Date: 20060701
  Serious: Yes (Other)
  Sender: FDA-Public Use
  Company Number: 2006028655

PATIENT
  Age: 87 Year
  Sex: Male
  Weight: 72.5755 kg

DRUGS (4)
  1. LIPITOR [Suspect]
     Indication: BLOOD CHOLESTEROL
     Dosage: 20 MG
     Dates: start: 19980101
  2. ZOCOR [Suspect]
     Indication: BLOOD CHOLESTEROL
  3. ZETIA [Suspect]
     Indication: BLOOD CHOLESTEROL
  4. ALL OTHER THERAPEUTIC PRODUCTS (ALL OTHER THREAPEUTIC PRODUCTS) [Concomitant]

REACTIONS (6)
  - CARDIAC PACEMAKER INSERTION [None]
  - IMPLANTABLE DEFIBRILLATOR INSERTION [None]
  - MIDDLE INSOMNIA [None]
  - MYALGIA [None]
  - PAIN IN EXTREMITY [None]
  - SPINAL COLUMN STENOSIS [None]
